FAERS Safety Report 7755383-1 (Version None)
Quarter: 2011Q3

REPORT INFORMATION
  Report Type: 
  Country: None (occurrence: None)
  Receive Date: 20110916
  Receipt Date: 20110907
  Transmission Date: 20111222
  Serious: Yes (Other)
  Sender: FDA-Public Use
  Company Number: US-MYLANLABS-2011S1012617

PATIENT
  Age: 42 Year
  Sex: Female

DRUGS (3)
  1. CLARAVIS [Suspect]
     Route: 048
  2. AMNESTEEM [Suspect]
     Route: 048
     Dates: end: 20110403
  3. PLAN B [Suspect]
     Indication: CONTRACEPTION
     Dates: start: 20110429, end: 20110429

REACTIONS (4)
  - VAGINAL HAEMORRHAGE [None]
  - BLIGHTED OVUM [None]
  - ABORTION SPONTANEOUS [None]
  - MATERNAL EXPOSURE BEFORE PREGNANCY [None]
